FAERS Safety Report 21068705 (Version 2)
Quarter: 2022Q3

REPORT INFORMATION
  Report Type: Spontaneous
  Country: US (occurrence: US)
  Receive Date: 20220712
  Receipt Date: 20220803
  Transmission Date: 20221026
  Serious: No
  Sender: FDA-Public Use
  Company Number: US-UNITED THERAPEUTICS-UNT-2022-013766

PATIENT
  Sex: Male
  Weight: 45.805 kg

DRUGS (4)
  1. TYVASO [Suspect]
     Active Substance: TREPROSTINIL
     Indication: Pulmonary arterial hypertension
     Dosage: UNK
     Dates: start: 20220524
  2. TYVASO [Suspect]
     Active Substance: TREPROSTINIL
     Dosage: 18-72 ?G, QID
     Dates: start: 2022
  3. TYVASO [Suspect]
     Active Substance: TREPROSTINIL
     Dosage: UNK
     Dates: start: 2022
  4. TYVASO [Suspect]
     Active Substance: TREPROSTINIL
     Dosage: 24 ?G, QID
     Dates: start: 2022, end: 20220715

REACTIONS (20)
  - Sinus congestion [Recovering/Resolving]
  - Facial pain [Recovering/Resolving]
  - Pain in jaw [Recovering/Resolving]
  - Ear pain [Recovering/Resolving]
  - Cough [Unknown]
  - Productive cough [Unknown]
  - Sputum discoloured [Unknown]
  - Upper-airway cough syndrome [Recovering/Resolving]
  - Oropharyngeal pain [Unknown]
  - Paranasal sinus discomfort [Recovering/Resolving]
  - Headache [Unknown]
  - Anxiety [Unknown]
  - Dysphonia [Unknown]
  - Palpitations [Unknown]
  - Respiratory tract congestion [Unknown]
  - Nasal congestion [Unknown]
  - Dizziness [Unknown]
  - Dyspnoea [Unknown]
  - Product dose omission issue [Unknown]
  - Incorrect dose administered [Unknown]

NARRATIVE: CASE EVENT DATE: 20220101
